FAERS Safety Report 4888326-9 (Version None)
Quarter: 2006Q1

REPORT INFORMATION
  Report Type: 
  Country: None (occurrence: None)
  Receive Date: 20060123
  Receipt Date: 20060116
  Transmission Date: 20060701
  Serious: Yes (Hospitalization)
  Sender: FDA-Public Use
  Company Number: 429758

PATIENT
  Age: 77 Year
  Sex: Male

DRUGS (9)
  1. DILATREND [Suspect]
     Dosage: 12.5MG PER DAY
     Route: 048
     Dates: end: 20050825
  2. TOREM [Suspect]
     Dosage: 2.5MG PER DAY
     Route: 048
     Dates: start: 20050815
  3. COVERSUM [Suspect]
     Dosage: 4MG TWICE PER DAY
     Route: 048
     Dates: end: 20050825
  4. MARCOUMAR [Concomitant]
  5. ZOCOR [Concomitant]
  6. ZYLORIC [Concomitant]
  7. METFORMIN [Concomitant]
  8. BECOZYME [Concomitant]
  9. ACIDUM FOLICUM [Concomitant]

REACTIONS (3)
  - CIRCULATORY COLLAPSE [None]
  - DRUG INTERACTION [None]
  - HYPOTENSION [None]
